FAERS Safety Report 8200482 (Version 5)
Quarter: 2014Q1

REPORT INFORMATION
  Report Type: Report from Study
  Country: US (occurrence: US)
  Receive Date: 20111026
  Receipt Date: 20140210
  Transmission Date: 20141002
  Serious: Yes (Hospitalization, Other)
  Sender: FDA-Public Use
  Company Number: US-ELI_LILLY_AND_COMPANY-US201110004465

PATIENT
  Age: 25 Year
  Sex: Female

DRUGS (13)
  1. TERIPARATIDE [Suspect]
     Indication: OSTEOPOROSIS
     Dosage: 20 UG, QD
     Route: 065
     Dates: end: 20110811
  2. TERIPARATIDE [Suspect]
     Dosage: 20 UG, QD
     Route: 065
     Dates: end: 201112
  3. TERIPARATIDE [Suspect]
     Dosage: 20 UG, QD
     Route: 065
     Dates: start: 201202
  4. KEPRA [Concomitant]
  5. ALENDRONATE SODIUM [Concomitant]
  6. SEASONIQUE [Concomitant]
  7. LACTULOSE [Concomitant]
  8. LORAZEPAM [Concomitant]
  9. AMBIEN [Concomitant]
  10. ZONEGRAN [Concomitant]
     Indication: CONVULSION
  11. VITAMIN D NOS [Concomitant]
  12. VIMPAT [Concomitant]
  13. DIASTAT [Concomitant]

REACTIONS (6)
  - Urinary tract obstruction [Unknown]
  - Renal disorder [Unknown]
  - Renal tubular disorder [Unknown]
  - Nephrolithiasis [Unknown]
  - Convulsion [Unknown]
  - Urinary retention [Unknown]
